FAERS Safety Report 9262531 (Version 1)
Quarter: 2013Q2

REPORT INFORMATION
  Report Type: Spontaneous
  Country: US (occurrence: US)
  Receive Date: 20130430
  Receipt Date: 20130430
  Transmission Date: 20140414
  Serious: Yes (Other)
  Sender: FDA-Public Use
  Company Number: US-BAYER-2013-051964

PATIENT
  Age: 42 Year
  Sex: Female
  Weight: 114.29 kg

DRUGS (5)
  1. YASMIN [Suspect]
  2. WELLBUTRIN [Concomitant]
     Dosage: UNK
     Dates: start: 20040925
  3. ADVIL [Concomitant]
     Dosage: UNK
     Dates: start: 20040830
  4. BUMEX [Concomitant]
  5. MOTRIN [Concomitant]

REACTIONS (1)
  - Thrombophlebitis superficial [None]
